FAERS Safety Report 25214435 (Version 1)
Quarter: 2025Q2

REPORT INFORMATION
  Report Type: Spontaneous
  Country: FR (occurrence: FR)
  Receive Date: 20250418
  Receipt Date: 20250418
  Transmission Date: 20250716
  Serious: Yes (Other)
  Sender: PFIZER
  Company Number: FR-ABBVIE-6211468

PATIENT

DRUGS (2)
  1. TOFACITINIB CITRATE [Suspect]
     Active Substance: TOFACITINIB CITRATE
     Indication: Inflammatory bowel disease
     Route: 048
  2. RINVOQ [Suspect]
     Active Substance: UPADACITINIB
     Indication: Inflammatory bowel disease
     Route: 048

REACTIONS (4)
  - Cushing^s syndrome [Unknown]
  - Off label use [Unknown]
  - Acne [Unknown]
  - Herpes zoster [Unknown]
